FAERS Safety Report 24552777 (Version 1)
Quarter: 2024Q4

REPORT INFORMATION
  Report Type: Report from Study
  Country: US (occurrence: US)
  Receive Date: 20241027
  Receipt Date: 20241027
  Transmission Date: 20250115
  Serious: Yes (Other)
  Sender: ALEXION PHARMACEUTICALS
  Company Number: US-AstraZeneca-CH-00723761A

PATIENT
  Age: 69 Year

DRUGS (4)
  1. CAPIVASERTIB [Suspect]
     Active Substance: CAPIVASERTIB
     Route: 065
  2. CAPIVASERTIB [Suspect]
     Active Substance: CAPIVASERTIB
  3. CAPIVASERTIB [Suspect]
     Active Substance: CAPIVASERTIB
     Route: 065
  4. CAPIVASERTIB [Suspect]
     Active Substance: CAPIVASERTIB

REACTIONS (5)
  - Flatulence [Not Recovered/Not Resolved]
  - Diarrhoea [Recovered/Resolved]
  - Abdominal pain [Not Recovered/Not Resolved]
  - Arthralgia [Not Recovered/Not Resolved]
  - Metastasis [Not Recovered/Not Resolved]
